FAERS Safety Report 7202959-6 (Version None)
Quarter: 2010Q4

REPORT INFORMATION
  Report Type: 
  Country: None (occurrence: None)
  Receive Date: 20101229
  Receipt Date: 20101223
  Transmission Date: 20110411
  Serious: Yes (Hospitalization)
  Sender: FDA-Public Use
  Company Number: US-AMGEN-USASP2010011042

PATIENT

DRUGS (14)
  1. NPLATE [Suspect]
     Indication: IDIOPATHIC THROMBOCYTOPENIC PURPURA
     Dosage: 500 A?G, Q2WK
     Dates: start: 20100721, end: 20101215
  2. CORTICOSTEROIDS [Concomitant]
     Indication: IDIOPATHIC THROMBOCYTOPENIC PURPURA
     Dosage: UNK
     Dates: start: 20100310, end: 20100331
  3. LANOXIN [Concomitant]
     Dosage: 0.125 MG, QD
     Route: 048
  4. TIAZAC                             /00489702/ [Concomitant]
     Dosage: 120 MG, BID
     Route: 048
  5. FERROUS SULFATE [Concomitant]
     Dosage: 325 MG, BID
     Route: 048
  6. LASIX [Concomitant]
     Dosage: 40 MG, UNK
     Route: 048
  7. GLUCOTROL [Concomitant]
     Dosage: 2.5 MG, QD
     Route: 048
  8. LANTUS [Concomitant]
     Dosage: 13 UNIT, PRN
  9. TOPROL-XL [Concomitant]
     Dosage: 50 MG, BID
     Route: 048
  10. PRILOSEC [Concomitant]
     Dosage: 20 MG, QD
     Route: 048
  11. DELTASONE                          /00044701/ [Concomitant]
     Dosage: 10 MG, QD
     Route: 048
  12. DELTASONE                          /00044701/ [Concomitant]
     Dosage: 5 MG, QD
     Route: 048
  13. CRESTOR [Concomitant]
     Dosage: 20 MG, QD
     Route: 048
  14. SENNATAB [Concomitant]
     Route: 048

REACTIONS (1)
  - CEREBROVASCULAR ACCIDENT [None]
